FAERS Safety Report 10936227 (Version 1)
Quarter: 2015Q1

REPORT INFORMATION
  Report Type: Spontaneous
  Country: JP (occurrence: JP)
  Receive Date: 20150320
  Receipt Date: 20150320
  Transmission Date: 20150721
  Serious: Yes (Hospitalization)
  Sender: FDA-Public Use
  Company Number: JP-SA-2015SA034277

PATIENT
  Age: 95 Year
  Sex: Female

DRUGS (1)
  1. ALLEGRA [Suspect]
     Active Substance: FEXOFENADINE HYDROCHLORIDE
     Route: 048
     Dates: start: 20150202

REACTIONS (3)
  - White blood cell count decreased [Unknown]
  - Platelet count decreased [Unknown]
  - Inflammation [Unknown]
